FAERS Safety Report 14045533 (Version 2)
Quarter: 2017Q4

REPORT INFORMATION
  Report Type: Spontaneous
  Country: US (occurrence: US)
  Receive Date: 20171005
  Receipt Date: 20171116
  Transmission Date: 20180321
  Serious: No
  Sender: FDA-Public Use
  Company Number: US-ASTRAZENECA-2017SF00980

PATIENT
  Age: 17445 Day
  Sex: Female
  Weight: 89.4 kg

DRUGS (3)
  1. METFORMIN [Concomitant]
     Active Substance: METFORMIN HYDROCHLORIDE
     Indication: TYPE 2 DIABETES MELLITUS
     Route: 048
  2. BYDUREON [Suspect]
     Active Substance: EXENATIDE
     Indication: GLYCOSYLATED HAEMOGLOBIN
     Route: 058
  3. BYDUREON [Suspect]
     Active Substance: EXENATIDE
     Indication: GLYCOSYLATED HAEMOGLOBIN
     Route: 058
     Dates: start: 20170915, end: 20170929

REACTIONS (13)
  - Injection site haemorrhage [Recovered/Resolved]
  - Injection site erythema [Unknown]
  - Drug dose omission [Unknown]
  - Injection site bruising [Recovered/Resolved]
  - Decreased appetite [Unknown]
  - Blood glucose abnormal [Unknown]
  - Therapeutic response unexpected [Unknown]
  - Product quality issue [Unknown]
  - Injection site rash [Not Recovered/Not Resolved]
  - Weight decreased [Unknown]
  - Injection site warmth [Unknown]
  - Injection site swelling [Unknown]
  - Nausea [Recovered/Resolved]

NARRATIVE: CASE EVENT DATE: 20170915
